FAERS Safety Report 9418119 (Version 1)
Quarter: 2013Q3

REPORT INFORMATION
  Report Type: Spontaneous
  Country: US (occurrence: US)
  Receive Date: 20130724
  Receipt Date: 20130724
  Transmission Date: 20140515
  Serious: Yes (Other)
  Sender: FDA-Public Use
  Company Number: US-ASTRAZENECA-2013SE53220

PATIENT
  Age: 65 Year
  Sex: Female
  Weight: 112.5 kg

DRUGS (3)
  1. QUETIAPINE [Suspect]
     Dosage: GENERIC, 400 MG EVERY 12 HOURS
     Route: 048
  2. QUETIAPINE [Suspect]
     Dosage: GENERIC, 200 MG UNKNOWN FREQUENCY
     Route: 048
  3. CYMBALTA [Concomitant]

REACTIONS (1)
  - Colitis ischaemic [Unknown]
